FAERS Safety Report 13042822 (Version 1)
Quarter: 2016Q4

REPORT INFORMATION
  Report Type: Spontaneous
  Country: US (occurrence: US)
  Receive Date: 20161219
  Receipt Date: 20161219
  Transmission Date: 20170207
  Serious: Yes (Hospitalization)
  Sender: FDA-Public Use
  Company Number: PHHY2016US172602

PATIENT
  Age: 48 Year
  Sex: Female

DRUGS (1)
  1. HYDROXYZINE [Suspect]
     Active Substance: HYDROXYZINE\HYDROXYZINE HYDROCHLORIDE
     Indication: SUICIDE ATTEMPT
     Route: 065

REACTIONS (4)
  - Overdose [Unknown]
  - Suicide attempt [Unknown]
  - Thyrotoxic crisis [Recovered/Resolved]
  - Atrial fibrillation [Recovered/Resolved]
